FAERS Safety Report 7584117-9 (Version None)
Quarter: 2011Q2

REPORT INFORMATION
  Report Type: 
  Country: None (occurrence: None)
  Receive Date: 20110630
  Receipt Date: 20110621
  Transmission Date: 20111010
  Serious: Yes (Other)
  Sender: FDA-Public Use
  Company Number: US-ASTRAZENECA-2010SE54991

PATIENT
  Age: 78 Year
  Sex: Female
  Weight: 87.5 kg

DRUGS (22)
  1. CARDIZEM CD [Concomitant]
     Indication: HYPERTENSION
     Route: 048
  2. MAGNESIUM [Concomitant]
     Indication: MUSCLE SPASMS
  3. ALPRAZOLAM [Concomitant]
  4. CALCIUM WITH VITAMIN D [Concomitant]
     Dosage: DAILY 2000, 1000 MG
     Route: 048
  5. XALATAN [Concomitant]
     Indication: GLAUCOMA
     Route: 050
  6. ALPRAZOLAM [Concomitant]
  7. PHENERGAN EXPECTORANT W/ CODEINE [Concomitant]
  8. FASLODEX [Suspect]
     Indication: BREAST CANCER
     Route: 030
     Dates: start: 20100506, end: 20110517
  9. BISOPROLOL [Concomitant]
     Indication: HYPERTENSION
     Route: 048
  10. LANTUS [Concomitant]
     Indication: DIABETES MELLITUS
     Route: 058
  11. AMBIEN [Concomitant]
     Indication: SLEEP DISORDER
     Route: 048
  12. TRUSOPT [Concomitant]
     Indication: GLAUCOMA
     Dosage: TID
     Route: 050
  13. PROTONIX [Concomitant]
     Indication: GASTROOESOPHAGEAL REFLUX DISEASE
     Route: 048
  14. AMBIEN [Concomitant]
     Route: 048
  15. CYCLOR + SALVE [Concomitant]
  16. XANAX [Concomitant]
     Dosage: PRN
     Route: 048
  17. ASPIRIN [Concomitant]
  18. IMODIUM [Concomitant]
  19. ARIMIDEX [Suspect]
     Indication: BREAST CANCER
     Route: 048
     Dates: start: 20090101, end: 20090101
  20. NOVOLIN R [Concomitant]
     Indication: DIABETES MELLITUS
     Route: 058
  21. MYTUSSIN [Concomitant]
  22. FLONASE [Concomitant]

REACTIONS (17)
  - OROPHARYNGEAL PAIN [None]
  - COUGH [None]
  - PAIN [None]
  - IMMOBILE [None]
  - INCORRECT DOSE ADMINISTERED [None]
  - BONE CANCER METASTATIC [None]
  - TUMOUR MARKER INCREASED [None]
  - INJECTION SITE NODULE [None]
  - INJECTION SITE PAIN [None]
  - FATIGUE [None]
  - INJECTION SITE DISCOMFORT [None]
  - NAUSEA [None]
  - HOT FLUSH [None]
  - HYPERGLYCAEMIA [None]
  - LABORATORY TEST ABNORMAL [None]
  - DIZZINESS [None]
  - THERAPEUTIC RESPONSE UNEXPECTED [None]
